FAERS Safety Report 16190991 (Version 1)
Quarter: 2019Q2

REPORT INFORMATION
  Report Type: Report from Study
  Country: US (occurrence: US)
  Receive Date: 20190412
  Receipt Date: 20190412
  Transmission Date: 20190711
  Serious: Yes (Death, Other)
  Sender: FDA-Public Use
  Company Number: US-GILEAD-2019-0396457

PATIENT
  Age: 76 Year
  Sex: Female

DRUGS (9)
  1. AMBRISENTAN [Suspect]
     Active Substance: AMBRISENTAN
     Indication: PRODUCT USED FOR UNKNOWN INDICATION
     Dosage: 10 MG, QD
     Route: 065
  2. ATORVASTATIN [Concomitant]
     Active Substance: ATORVASTATIN
  3. ALPRAZOLAM. [Concomitant]
     Active Substance: ALPRAZOLAM
  4. CHOLESTYRAMINE. [Concomitant]
     Active Substance: CHOLESTYRAMINE
  5. FUROSEMIDE. [Concomitant]
     Active Substance: FUROSEMIDE
  6. UPTRAVI [Concomitant]
     Active Substance: SELEXIPAG
  7. CARVEDIOL [Concomitant]
     Active Substance: CARVEDILOL
  8. OXYBUTYNIN CHLORIDE. [Concomitant]
     Active Substance: OXYBUTYNIN CHLORIDE
  9. WARFARIN SODIUM. [Concomitant]
     Active Substance: WARFARIN SODIUM

REACTIONS (4)
  - Product dose omission [Unknown]
  - Death [Fatal]
  - Fluid retention [Unknown]
  - Swelling [Unknown]
